FAERS Safety Report 6809634-8 (Version None)
Quarter: 2010Q2

REPORT INFORMATION
  Report Type: 
  Country: None (occurrence: None)
  Receive Date: 20100630
  Receipt Date: 20100621
  Transmission Date: 20101027
  Serious: Yes (Other)
  Sender: FDA-Public Use
  Company Number: FR-PFIZER INC-2010057827

PATIENT
  Age: 57 Year
  Sex: Female
  Weight: 60 kg

DRUGS (1)
  1. TAHOR [Suspect]
     Dosage: 10 MG, 1 TABLET PER DAY

REACTIONS (3)
  - DRY MOUTH [None]
  - FATIGUE [None]
  - MALAISE [None]
